FAERS Safety Report 7372772-8 (Version None)
Quarter: 2011Q1

REPORT INFORMATION
  Report Type: 
  Country: None (occurrence: None)
  Receive Date: 20110324
  Receipt Date: 20090930
  Transmission Date: 20110831
  Serious: Yes (Other)
  Sender: FDA-Public Use
  Company Number: US-BAYER-200934593NA

PATIENT
  Sex: Female
  Weight: 104.31 kg

DRUGS (18)
  1. NEURONTIN [Concomitant]
  2. LASIX [Concomitant]
  3. LASIX [Concomitant]
     Route: 042
  4. DOPAMINE [Concomitant]
     Dosage: UNK
     Route: 042
  5. ACETYLSALICYLIC ACID SRT [Concomitant]
  6. FENTANYL [Concomitant]
     Route: 042
  7. PLATELETS [Concomitant]
     Dosage: UNK
     Route: 042
     Dates: start: 20050104
  8. NPH INSULIN [Concomitant]
  9. METFORMIN HCL [Concomitant]
  10. BISOPROLOL [Concomitant]
  11. VERSED [Concomitant]
     Route: 042
  12. NITROGLYCERIN [Concomitant]
     Route: 042
  13. TRASYLOL [Suspect]
     Indication: CORONARY ARTERY BYPASS
     Dosage: 400 ML, UNK
     Route: 042
     Dates: start: 20050104, end: 20050104
  14. PROZAC [Concomitant]
  15. HEPARIN [Concomitant]
     Route: 042
  16. RED BLOOD CELLS [Concomitant]
     Dosage: 9 U, UNK
     Route: 042
     Dates: start: 20050104
  17. PLASMA [Concomitant]
     Dosage: 1 U, UNK
     Route: 042
     Dates: start: 20050104
  18. ANCEF [Concomitant]
     Route: 042

REACTIONS (5)
  - RENAL FAILURE [None]
  - INJURY [None]
  - RENAL FAILURE ACUTE [None]
  - UNEVALUABLE EVENT [None]
  - PAIN [None]
